FAERS Safety Report 6207941-3 (Version None)
Quarter: 2009Q2

REPORT INFORMATION
  Report Type: 
  Country: None (occurrence: None)
  Receive Date: 20090529
  Receipt Date: 20080611
  Transmission Date: 20091009
  Serious: No
  Sender: FDA-Public Use
  Company Number: A0732686A

PATIENT
  Age: 18 Month
  Sex: Male

DRUGS (2)
  1. VENTOLIN [Suspect]
     Indication: ASTHMA
     Dosage: 2PUFF PER DAY
     Route: 055
     Dates: start: 20080610
  2. SYMBICORT [Suspect]
     Indication: ASTHMA
     Route: 055

REACTIONS (1)
  - ERYTHEMA [None]
